FAERS Safety Report 26121878 (Version 2)
Quarter: 2025Q4

REPORT INFORMATION
  Report Type: Spontaneous
  Country: US (occurrence: US)
  Receive Date: 20251204
  Receipt Date: 20251223
  Transmission Date: 20260117
  Serious: Yes (Hospitalization)
  Sender: TEVA
  Company Number: US-TEVA-VS-3397321

PATIENT
  Age: 4 Week
  Sex: Male

DRUGS (5)
  1. DIAZOXIDE [Suspect]
     Active Substance: DIAZOXIDE
     Indication: Hyperinsulinism
     Dosage: ACCIDENTAL OVERDOSE OF 10-FOLD DIAZOXIDE
     Route: 065
  2. DIAZOXIDE [Suspect]
     Active Substance: DIAZOXIDE
     Indication: Stress
  3. DIAZOXIDE [Suspect]
     Active Substance: DIAZOXIDE
     Indication: Neonatal disorder
  4. CHLOROTHIAZIDE [Concomitant]
     Active Substance: CHLOROTHIAZIDE
     Indication: Hyperinsulinism
     Route: 065
  5. DEVICE [Suspect]
     Active Substance: DEVICE

REACTIONS (7)
  - Accidental overdose [Unknown]
  - Wrong dose [Unknown]
  - Ileus [Recovered/Resolved]
  - Feeding intolerance [Recovered/Resolved]
  - Abdominal distension [Recovered/Resolved]
  - Tachycardia [Recovered/Resolved]
  - Tachypnoea [Recovered/Resolved]
